FAERS Safety Report 5197613-9 (Version None)
Quarter: 2006Q4

REPORT INFORMATION
  Report Type: 
  Country: None (occurrence: None)
  Receive Date: 20061228
  Receipt Date: 20061215
  Transmission Date: 20070319
  Serious: Yes (Life-Threatening)
  Sender: FDA-Public Use
  Company Number: TCI2006A05527

PATIENT
  Age: 68 Year
  Sex: Male

DRUGS (10)
  1. ACTOS [Suspect]
     Indication: DIABETES MELLITUS
     Dosage: 30 MG (30 MG, 1 IN 1 D)
     Route: 048
     Dates: start: 20061115, end: 20061121
  2. ACTOS [Suspect]
     Indication: DIABETES MELLITUS
     Dosage: 30 MG (30 MG, 1 IN 1 D)
     Route: 048
     Dates: start: 20061115
  3. PREDNISOLONE [Suspect]
     Dosage: 10 MG (5 MG, 2 IN 1 D)
     Route: 048
     Dates: start: 20061108, end: 20061121
  4. LANSOPRAZOLE [Concomitant]
  5. LASIX [Concomitant]
  6. RIFATAC (ISOSORBIDE DINITRATE) [Concomitant]
  7. URINORM (BENZBROMARONE) [Concomitant]
  8. DILTIAZEM HYDROCHLORIDE [Concomitant]
  9. ALLOZYM (ALLOPURINOL) [Concomitant]
  10. SODIUM BICARBONATE [Concomitant]

REACTIONS (14)
  - BLOOD PRESSURE SYSTOLIC INCREASED [None]
  - BRONCHITIS ACUTE [None]
  - CANDIDIASIS [None]
  - CARDIAC FAILURE CONGESTIVE [None]
  - CHEST DISCOMFORT [None]
  - CYANOSIS [None]
  - DEPRESSED LEVEL OF CONSCIOUSNESS [None]
  - DISSEMINATED INTRAVASCULAR COAGULATION [None]
  - HEART RATE INCREASED [None]
  - OXYGEN SATURATION DECREASED [None]
  - PNEUMONIA [None]
  - PULMONARY CONGESTION [None]
  - PYREXIA [None]
  - SPUTUM CULTURE POSITIVE [None]
